FAERS Safety Report 11511268 (Version 1)
Quarter: 2015Q3

REPORT INFORMATION
  Report Type: Report from Study
  Country: DE (occurrence: CO)
  Receive Date: 20150915
  Receipt Date: 20150915
  Transmission Date: 20151125
  Serious: Yes (Hospitalization)
  Sender: FDA-Public Use
  Company Number: DE-ACTELION-A-NJ2015-123967

PATIENT
  Age: 30 Year
  Sex: Female

DRUGS (1)
  1. VENTAVIS [Suspect]
     Active Substance: ILOPROST
     Indication: PULMONARY HYPERTENSION
     Dosage: UNK, QID
     Route: 055
     Dates: start: 20150817

REACTIONS (2)
  - Respiratory disorder [Not Recovered/Not Resolved]
  - Product use issue [Not Recovered/Not Resolved]
